FAERS Safety Report 23131699 (Version 1)
Quarter: 2023Q4

REPORT INFORMATION
  Report Type: Spontaneous
  Country: IT (occurrence: IT)
  Receive Date: 20231031
  Receipt Date: 20231031
  Transmission Date: 20240109
  Serious: Yes (Other)
  Sender: FDA-Public Use
  Company Number: IT-ELI_LILLY_AND_COMPANY-IT202306017814

PATIENT
  Age: 79 Year
  Sex: Female

DRUGS (8)
  1. CARBOPLATIN [Suspect]
     Active Substance: CARBOPLATIN
     Indication: Pleural mesothelioma malignant
     Dosage: UNK UNK, UNKNOWN
     Route: 065
     Dates: start: 20200608, end: 20200726
  2. CARBOPLATIN [Suspect]
     Active Substance: CARBOPLATIN
     Dosage: UNK UNK, UNKNOWN
     Route: 065
     Dates: start: 20200401, end: 20200520
  3. CISPLATIN [Suspect]
     Active Substance: CISPLATIN
     Indication: Pleural mesothelioma malignant
     Dosage: UNK UNK, UNKNOWN
     Route: 065
     Dates: start: 20170518, end: 20170726
  4. PEMETREXED [Suspect]
     Active Substance: PEMETREXED
     Indication: Pleural mesothelioma malignant
     Dosage: UNK UNK, UNKNOWN
     Route: 065
     Dates: start: 20200401, end: 20200520
  5. PEMETREXED [Suspect]
     Active Substance: PEMETREXED
     Dosage: UNK UNK, UNKNOWN
     Route: 065
     Dates: start: 20170518, end: 20170726
  6. PEMETREXED [Suspect]
     Active Substance: PEMETREXED
     Dosage: UNK UNK, UNKNOWN
     Route: 065
     Dates: start: 20200608, end: 20200720
  7. PREDNISONE [Concomitant]
     Active Substance: PREDNISONE
     Indication: Product used for unknown indication
     Dosage: 0.5 DOSAGE FORM, DAILY
     Route: 065
  8. PANTOPRAZOLE [Concomitant]
     Active Substance: PANTOPRAZOLE
     Indication: Product used for unknown indication
     Dosage: 1 DOSAGE FORM, UNKNOWN
     Route: 065

REACTIONS (2)
  - Malignant neoplasm progression [Unknown]
  - Therapy partial responder [Unknown]

NARRATIVE: CASE EVENT DATE: 20170804
